FAERS Safety Report 20919076 (Version 1)
Quarter: 2022Q2

REPORT INFORMATION
  Report Type: Spontaneous
  Country: US (occurrence: None)
  Receive Date: 20220603
  Receipt Date: 20220603
  Transmission Date: 20220721
  Serious: Yes (Other)
  Sender: FDA-Public Use
  Company Number: None

PATIENT
  Age: 4 Year
  Sex: Female

DRUGS (2)
  1. COPPERTONE PURE AND SIMPLE SUNSCREEN SPF 50 [Suspect]
     Active Substance: ZINC OXIDE
     Indication: Prophylaxis against solar radiation
     Dosage: FREQUENCY : AS NEEDED;?
     Route: 061
     Dates: start: 20220526, end: 20220603
  2. VITAMINS [Concomitant]
     Active Substance: VITAMINS

REACTIONS (4)
  - Blister [None]
  - Eczema [None]
  - Product odour abnormal [None]
  - Skin reaction [None]

NARRATIVE: CASE EVENT DATE: 20220527
